FAERS Safety Report 19014388 (Version 1)
Quarter: 2021Q1

REPORT INFORMATION
  Report Type: Spontaneous
  Country: US (occurrence: US)
  Receive Date: 20210316
  Receipt Date: 20210316
  Transmission Date: 20210420
  Serious: No
  Sender: FDA-Public Use
  Company Number: US-BAUSCH-BL-2021-005318

PATIENT
  Age: 57 Year
  Sex: Female

DRUGS (3)
  1. LUMIFY [Suspect]
     Active Substance: BRIMONIDINE TARTRATE
     Indication: OCULAR HYPERAEMIA
     Dosage: AS NEEDED (APPROXIMATELY 1 AND A HALF MONTHS AGO)
     Route: 047
     Dates: start: 202012
  2. GOOD SENSE EYE DROPS [Concomitant]
     Indication: PRODUCT USED FOR UNKNOWN INDICATION
     Dosage: AS NEEDED
     Route: 047
  3. BUSPIRONE [Concomitant]
     Active Substance: BUSPIRONE HYDROCHLORIDE
     Indication: PRODUCT USED FOR UNKNOWN INDICATION
     Dosage: AS DIRECTED
     Route: 048

REACTIONS (2)
  - Therapeutic product effect incomplete [Unknown]
  - Product quality issue [Unknown]

NARRATIVE: CASE EVENT DATE: 202012
